FAERS Safety Report 9606065 (Version 2)
Quarter: 2014Q2

REPORT INFORMATION
  Report Type: Spontaneous
  Country: US (occurrence: US)
  Receive Date: 20131008
  Receipt Date: 20140519
  Transmission Date: 20141212
  Serious: No
  Sender: FDA-Public Use
  Company Number: US-AMGEN-USASP2013038846

PATIENT
  Age: 78 Year
  Sex: Female

DRUGS (7)
  1. PROLIA [Suspect]
     Indication: OSTEOPOROSIS POSTMENOPAUSAL
     Dosage: UNK
     Route: 065
     Dates: start: 201206
  2. LEVOTHYROXINE [Concomitant]
  3. COZAAR [Concomitant]
  4. PLAVIX [Concomitant]
     Dates: start: 2009
  5. CENTRUM SILVER                     /02363801/ [Concomitant]
  6. CALCIUM [Concomitant]
  7. GABAPENTIN [Concomitant]
     Dates: start: 201110, end: 201301

REACTIONS (10)
  - Dizziness [Not Recovered/Not Resolved]
  - Malaise [Unknown]
  - Asthenia [Unknown]
  - Drug effect decreased [Unknown]
  - Nausea [Not Recovered/Not Resolved]
  - Appetite disorder [Unknown]
  - Weight decreased [Unknown]
  - Abdominal discomfort [Unknown]
  - Abdominal pain upper [Unknown]
  - Gastrooesophageal reflux disease [Unknown]
